FAERS Safety Report 7318362-4 (Version None)
Quarter: 2011Q1

REPORT INFORMATION
  Report Type: 
  Country: None (occurrence: None)
  Receive Date: 20110217
  Receipt Date: 20110217
  Transmission Date: 20110831
  Serious: Yes (Other)
  Sender: FDA-Public Use
  Company Number: None

PATIENT
  Age: 61 Year
  Sex: Female
  Weight: 63.5036 kg

DRUGS (1)
  1. CVS PSEUDOEPHEDRINE 120 MG CVS PHARMACY [Suspect]
     Indication: NASAL CONGESTION
     Dosage: 1 12 HOURS PO
     Route: 048
     Dates: start: 20110214, end: 20110215

REACTIONS (10)
  - ASTHENIA [None]
  - DIZZINESS [None]
  - LOSS OF CONSCIOUSNESS [None]
  - RETCHING [None]
  - DYSPNOEA [None]
  - THROAT TIGHTNESS [None]
  - FATIGUE [None]
  - PRODUCT SUBSTITUTION ISSUE [None]
  - LARYNGITIS [None]
  - THROAT IRRITATION [None]
